FAERS Safety Report 19422725 (Version 1)
Quarter: 2021Q2

REPORT INFORMATION
  Report Type: Spontaneous
  Country: HR (occurrence: HR)
  Receive Date: 20210616
  Receipt Date: 20210616
  Transmission Date: 20210717
  Serious: Yes (Disabling)
  Sender: FDA-Public Use
  Company Number: None

PATIENT
  Age: 66 Year
  Sex: Male
  Weight: 75 kg

DRUGS (6)
  1. ORGANIC TURMERIC [Concomitant]
  2. GLUCOSAMINE SULPHATE [Concomitant]
     Active Substance: GLUCOSAMINE
  3. ORGANIC BLACK PEPPER [Concomitant]
  4. XARELTO [Suspect]
     Active Substance: RIVAROXABAN
     Indication: ATRIAL FIBRILLATION
     Dosage: ?          QUANTITY:1 TABLET(S);?
     Route: 048
     Dates: start: 20190901
  5. BISOPROLOL FUMARATE. [Concomitant]
     Active Substance: BISOPROLOL FUMARATE
  6. NEXIUM [Concomitant]
     Active Substance: ESOMEPRAZOLE MAGNESIUM

REACTIONS (4)
  - Vertigo [None]
  - Dizziness [None]
  - Extra dose administered [None]
  - Lip dry [None]

NARRATIVE: CASE EVENT DATE: 20210615
